FAERS Safety Report 23581971 (Version 3)
Quarter: 2024Q2

REPORT INFORMATION
  Report Type: Report from Study
  Country: US (occurrence: US)
  Receive Date: 20240229
  Receipt Date: 20240612
  Transmission Date: 20240716
  Serious: No
  Sender: FDA-Public Use
  Company Number: US-AstraZeneca-CH-00574230A

PATIENT
  Age: 68 Year
  Sex: Female

DRUGS (1)
  1. STRENSIQ [Suspect]
     Active Substance: ASFOTASE ALFA
     Indication: Hypophosphatasia
     Dosage: 142 MILLIGRAM, TIW
     Route: 058
     Dates: start: 20240225

REACTIONS (5)
  - Injection site pain [Recovered/Resolved]
  - Injection site mass [Unknown]
  - Lymphoedema [Unknown]
  - Tremor [Unknown]
  - Eye disorder [Unknown]

NARRATIVE: CASE EVENT DATE: 20240225
